FAERS Safety Report 15928718 (Version 1)
Quarter: 2019Q1

REPORT INFORMATION
  Report Type: Spontaneous
  Country: PL (occurrence: PL)
  Receive Date: 20190206
  Receipt Date: 20190206
  Transmission Date: 20190417
  Serious: Yes (Death)
  Sender: FDA-Public Use
  Company Number: PL-NATCO PHARMA-2019NAT00009

PATIENT

DRUGS (1)
  1. AZACITIDINE. [Suspect]
     Active Substance: AZACITIDINE
     Indication: MYELODYSPLASTIC SYNDROME
     Dosage: 75 MG/M2, 1X/DAY, DAYS 1 THROUGH 7 OF EACH 28-DAY CYCLE
     Route: 058

REACTIONS (1)
  - Cerebrovascular accident [Fatal]
